FAERS Safety Report 10464363 (Version 5)
Quarter: 2015Q2

REPORT INFORMATION
  Report Type: Spontaneous
  Country: US (occurrence: US)
  Receive Date: 20140919
  Receipt Date: 20150626
  Transmission Date: 20150821
  Serious: Yes (Hospitalization, Other)
  Sender: FDA-Public Use
  Company Number: US-UCBSA-2014011484

PATIENT
  Age: 60 Year
  Sex: Female
  Weight: 81 kg

DRUGS (3)
  1. VIMPAT [Suspect]
     Active Substance: LACOSAMIDE
     Indication: SEIZURE
     Dosage: 100 MG, 2X/DAY (BID)
     Route: 048
     Dates: start: 201204, end: 201409
  2. VIMPAT [Suspect]
     Active Substance: LACOSAMIDE
     Dosage: 150 MG, 2X/DAY (BID)
     Route: 048
     Dates: start: 201409, end: 2015
  3. LISINOPRIL AND HYDROCHLOROTHIAZIDE [Concomitant]
     Active Substance: HYDROCHLOROTHIAZIDE\LISINOPRIL
     Indication: HYPERTENSION
     Dosage: NO OF INTAKE: ONE (20/25 MG OF LISINOPRIL/HCTZ), ONCE DAILY (QD)
     Route: 048

REACTIONS (2)
  - Seizure [Recovered/Resolved]
  - Bladder prolapse [Recovered/Resolved]

NARRATIVE: CASE EVENT DATE: 201404
